FAERS Safety Report 10392393 (Version 2)
Quarter: 2015Q2

REPORT INFORMATION
  Report Type: Spontaneous
  Country: US (occurrence: None)
  Receive Date: 20140815
  Receipt Date: 20150612
  Transmission Date: 20150821
  Serious: Yes (Other)
  Sender: FDA-Public Use
  Company Number: 2014COV00081

PATIENT
  Age: 84 Year
  Sex: Male
  Weight: 70.3 kg

DRUGS (5)
  1. LANOXIN [Suspect]
     Active Substance: DIGOXIN
     Indication: TACHYCARDIA
     Route: 048
     Dates: start: 2006
  2. TERAZOSIN [Suspect]
     Active Substance: TERAZOSIN\TERAZOSIN HYDROCHLORIDE
  3. LANOXIN [Suspect]
     Active Substance: DIGOXIN
     Indication: CARDIAC PACEMAKER INSERTION
     Route: 048
     Dates: start: 2006
  4. LANOXIN [Suspect]
     Active Substance: DIGOXIN
     Indication: ATRIAL FIBRILLATION
     Route: 048
     Dates: start: 2006
  5. DILTIAZEM [Suspect]
     Active Substance: DILTIAZEM

REACTIONS (11)
  - Extra dose administered [None]
  - Atrial fibrillation [None]
  - Infection [None]
  - Heart rate decreased [None]
  - Speech disorder [None]
  - Tachycardia [None]
  - Drug effect decreased [None]
  - Drug effect delayed [None]
  - Abnormal behaviour [None]
  - Extrasystoles [None]
  - Pyrexia [None]

NARRATIVE: CASE EVENT DATE: 201405
